FAERS Safety Report 8957359 (Version 1)
Quarter: 2012Q4

REPORT INFORMATION
  Report Type: 
  Country: GR (occurrence: GR)
  Receive Date: 20121211
  Receipt Date: 20121211
  Transmission Date: 20130627
  Serious: Yes (Death)
  Sender: FDA-Public Use
  Company Number: GR-MYLANLABS-2012S1024614

PATIENT
  Age: 60 Year
  Sex: Male

DRUGS (4)
  1. QUETIAPINE [Suspect]
     Indication: OVERDOSE
     Dosage: ingested approx 9000mg quetiapine
     Route: 048
  2. QUETIAPINE [Suspect]
     Indication: SCHIZOPHRENIA
     Dosage: ingested approx 9000mg quetiapine
     Route: 048
  3. QUETIAPINE [Suspect]
     Indication: OVERDOSE
     Dosage: 600mg daily
     Route: 065
  4. QUETIAPINE [Suspect]
     Indication: SCHIZOPHRENIA
     Dosage: 600mg daily
     Route: 065

REACTIONS (3)
  - Overdose [Fatal]
  - Sudden cardiac death [Fatal]
  - Cardiac arrest [Fatal]
